FAERS Safety Report 15165676 (Version 1)
Quarter: 2018Q3

REPORT INFORMATION
  Report Type: Report from Study
  Country: IT (occurrence: IT)
  Receive Date: 20180719
  Receipt Date: 20180719
  Transmission Date: 20181010
  Serious: Yes (Other)
  Sender: FDA-Public Use
  Company Number: IT-PFIZER INC-2018286766

PATIENT
  Age: 83 Year
  Sex: Female

DRUGS (2)
  1. TARGIN [Suspect]
     Active Substance: NALOXONE HYDROCHLORIDE\OXYCODONE HYDROCHLORIDE
     Dosage: 8 DF, TOTAL
     Route: 048
     Dates: start: 20180501, end: 20180501
  2. TAVOR (LORAZEPAM) [Suspect]
     Active Substance: LORAZEPAM
     Dosage: 20 DF, TOTAL
     Route: 048
     Dates: start: 20180501, end: 20180501

REACTIONS (3)
  - Sopor [Recovering/Resolving]
  - Bradyphrenia [Recovering/Resolving]
  - Suicide attempt [Recovering/Resolving]

NARRATIVE: CASE EVENT DATE: 20180501
